FAERS Safety Report 10027417 (Version 1)
Quarter: 2014Q1

REPORT INFORMATION
  Report Type: Spontaneous
  Country: AU (occurrence: None)
  Receive Date: 20140318
  Receipt Date: 20140318
  Transmission Date: 20141002
  Serious: Yes (Hospitalization)
  Sender: FDA-Public Use
  Company Number: SYM-2014-18469

PATIENT
  Age: 26 Year
  Sex: Female

DRUGS (4)
  1. WELLBUTRIN XL [Suspect]
     Indication: PRODUCT USED FOR UNKNOWN INDICATION
     Dosage: 25 PIECES
     Route: 042
     Dates: start: 20140127
  2. LYRICA [Concomitant]
  3. ABILIFY [Concomitant]
  4. SEROQUEL XR [Concomitant]

REACTIONS (7)
  - Drug administration error [None]
  - Hallucinations, mixed [None]
  - Insomnia [None]
  - C-reactive protein increased [None]
  - Blood potassium decreased [None]
  - Blood creatine phosphokinase increased [None]
  - Blood lactate dehydrogenase increased [None]
